FAERS Safety Report 12225950 (Version 14)
Quarter: 2017Q3

REPORT INFORMATION
  Report Type: Spontaneous
  Country: CN (occurrence: CN)
  Receive Date: 20160331
  Receipt Date: 20170823
  Transmission Date: 20171127
  Serious: Yes (Hospitalization, Other)
  Sender: FDA-Public Use
  Company Number: CN-009507513-1603CHN013654

PATIENT
  Age: 49 Year
  Sex: Male
  Weight: 64 kg

DRUGS (31)
  1. EMEND [Suspect]
     Active Substance: APREPITANT
     Dosage: 80 MG, ONCE, DAY3
     Route: 048
     Dates: start: 20160320, end: 20160320
  2. CISPLATIN. [Suspect]
     Active Substance: CISPLATIN
     Indication: CHEMOTHERAPY
     Dosage: 130 MG, CYCLICAL (DP), TREATMENT CYCLE: 1
     Route: 041
     Dates: start: 20160318, end: 20160318
  3. ACETAMINOPHEN (+) DIHYDROCODEINE BITARTRATE [Concomitant]
     Active Substance: ACETAMINOPHEN\DIHYDROCODEINE BITARTRATE
     Dosage: TOTAL DAILY DOSE: 2000 MG, BID
     Route: 048
     Dates: start: 20160317, end: 20160322
  4. DEXAMETHASONE ACETATE [Concomitant]
     Active Substance: DEXAMETHASONE ACETATE
     Indication: ALLERGY PROPHYLAXIS
     Dosage: TOTAL DAILY DOSE: 15 MG, FREQUENCY: BID
     Route: 048
     Dates: start: 20160317, end: 20160317
  5. FUROSEMIDE. [Concomitant]
     Active Substance: FUROSEMIDE
     Indication: POLYURIA
     Dosage: 20 MG, QD
     Route: 042
     Dates: start: 20160317, end: 20160320
  6. AMINO ACIDS (UNSPECIFIED) [Concomitant]
     Active Substance: AMINO ACIDS
     Dosage: 12.5 G, QD
     Route: 041
     Dates: start: 20160326, end: 20160401
  7. PHOSPHOCREATINE SODIUM [Concomitant]
     Active Substance: PHOSPHOCREATINE SODIUM
     Indication: CARDIOVASCULAR EVENT PROPHYLAXIS
     Dosage: 1 G, QD
     Route: 041
     Dates: start: 20160317, end: 20160321
  8. ADEMETIONINE BUTANEDISULFONATE [Concomitant]
     Indication: PROPHYLAXIS
     Dosage: 1 G, QD
     Route: 041
     Dates: start: 20160317, end: 20160321
  9. EMEND [Suspect]
     Active Substance: APREPITANT
     Dosage: 80 MG, ONCE, DAY2
     Route: 048
     Dates: start: 20160319, end: 20160319
  10. CALCIUM GLUCONATE (+) DEXTROSE (+) MAGNESIUM SULFATE (+) POTASSIUM CHL [Concomitant]
     Dosage: TOTAL DAILY DOSE: 500 ML/CC, ONCE
     Route: 041
     Dates: start: 20160320, end: 20160320
  11. DOCETAXEL. [Suspect]
     Active Substance: DOCETAXEL
     Indication: CHEMOTHERAPY
     Dosage: 130 MG, CYCLICAL (DP), TREATMENT CYCLE 1
     Route: 041
     Dates: start: 20160318, end: 20160318
  12. DEXAMETHASONE ACETATE [Concomitant]
     Active Substance: DEXAMETHASONE ACETATE
     Dosage: 7.5 MG, QD
     Route: 048
     Dates: start: 20160318, end: 20160319
  13. DEXTROSE. [Concomitant]
     Active Substance: DEXTROSE
     Indication: FLUID REPLACEMENT
     Dosage: TOTAL DAILY DOSE: 250ML/CC
     Route: 041
     Dates: start: 20160317, end: 20160317
  14. THYMOPENTIN [Concomitant]
     Active Substance: THYMOPENTIN
     Indication: IMMUNE ENHANCEMENT THERAPY
     Dosage: 30 MG, QD
     Route: 041
     Dates: start: 20160311, end: 20160322
  15. VITAMINS (UNSPECIFIED) [Concomitant]
     Active Substance: VITAMINS
     Indication: FLUID REPLACEMENT
     Dosage: STRENGTH: 1 UNIT; TOTAL DAILY DOSE: 1 UNIT
     Route: 041
     Dates: start: 20160317, end: 20160321
  16. VITAMINS (UNSPECIFIED) [Concomitant]
     Active Substance: VITAMINS
     Indication: NUTRITIONAL SUPPLEMENTATION
     Dosage: 1 BOTTLE, ONCE
     Route: 041
     Dates: start: 20160326, end: 20160326
  17. OMEPRAZOLE SODIUM [Concomitant]
     Active Substance: OMEPRAZOLE SODIUM
     Indication: PROPHYLAXIS
     Dosage: 42.6 MG, QD
     Route: 041
     Dates: start: 20160317, end: 20160322
  18. EMEND [Suspect]
     Active Substance: APREPITANT
     Indication: PROPHYLAXIS OF NAUSEA AND VOMITING
     Dosage: 125 MG, ONCE, DAY 1
     Route: 048
     Dates: start: 20160318, end: 20160318
  19. ACETAMINOPHEN (+) DIHYDROCODEINE BITARTRATE [Concomitant]
     Active Substance: ACETAMINOPHEN\DIHYDROCODEINE BITARTRATE
     Indication: ANALGESIC THERAPY
     Dosage: 1000 MG, ONCE
     Route: 048
     Dates: start: 20160314, end: 20160314
  20. SHEN QI FU ZHENG ZHU SHE YE [Concomitant]
     Dosage: 250 ML, QD
     Route: 041
     Dates: start: 20160326, end: 20160402
  21. SODIUM BICARBONATE. [Concomitant]
     Active Substance: SODIUM BICARBONATE
     Indication: URINE ALKALINISATION THERAPY
     Dosage: TOTAL DAILY DOSE: 3 G, FREQUENCY: TID
     Route: 048
     Dates: start: 20160317, end: 20160321
  22. DEXAMETHASONE SODIUM PHOSPHATE. [Concomitant]
     Active Substance: DEXAMETHASONE SODIUM PHOSPHATE
     Indication: PROPHYLAXIS OF NAUSEA AND VOMITING
     Dosage: 12 MG, ONCE
     Route: 041
     Dates: start: 20160318, end: 20160318
  23. DEXAMETHASONE SODIUM PHOSPHATE. [Concomitant]
     Active Substance: DEXAMETHASONE SODIUM PHOSPHATE
     Dosage: 8 MG, QD
     Route: 041
     Dates: start: 20160319, end: 20160321
  24. SHEN QI FU ZHENG ZHU SHE YE [Concomitant]
     Indication: IMMUNE ENHANCEMENT THERAPY
     Dosage: TOTAL DAILY DOSE: 250 ML/CC, ONCE
     Route: 041
     Dates: start: 20160319, end: 20160319
  25. CALCIUM GLUCONATE (+) DEXTROSE (+) MAGNESIUM SULFATE (+) POTASSIUM CHL [Concomitant]
     Dosage: TOTAL DAILY DOSE: 1000 ML/CC
     Route: 041
     Dates: start: 20160319, end: 20160319
  26. TROPISETRON HYDROCHLORIDE [Concomitant]
     Active Substance: TROPISETRON HYDROCHLORIDE
     Indication: PROPHYLAXIS OF NAUSEA AND VOMITING
     Dosage: 5 MG, ONCE
     Route: 041
     Dates: start: 20160318, end: 20160318
  27. CALCIUM GLUCONATE (+) DEXTROSE (+) MAGNESIUM SULFATE (+) POTASSIUM CHL [Concomitant]
     Indication: FLUID REPLACEMENT
     Dosage: TOTAL DAILY DOSE: 1000 ML/CC
     Route: 041
     Dates: start: 20160317, end: 20160317
  28. RIBONUCLEIC ACID [Concomitant]
     Active Substance: RIBONUCLEIC ACID
     Indication: IMMUNE ENHANCEMENT THERAPY
     Dosage: 100 MG, QD
     Route: 041
     Dates: start: 20160311, end: 20160322
  29. VITAMINS (UNSPECIFIED) [Concomitant]
     Active Substance: VITAMINS
     Dosage: UNK
  30. AMINO ACIDS (UNSPECIFIED) [Concomitant]
     Active Substance: AMINO ACIDS
     Indication: FLUID REPLACEMENT
     Dosage: 12.5 G, QD
     Route: 041
     Dates: start: 20160317, end: 20160322
  31. THYMOPENTIN [Concomitant]
     Active Substance: THYMOPENTIN
     Dosage: 40 MG, QD
     Route: 041
     Dates: start: 20160325, end: 20160401

REACTIONS (7)
  - Diarrhoea [Recovered/Resolved]
  - Dizziness [Recovered/Resolved]
  - Asthenia [Recovered/Resolved]
  - Bone marrow failure [Recovered/Resolved]
  - Blood albumin decreased [Recovered/Resolved]
  - Blood electrolytes abnormal [Recovered/Resolved]
  - Hiccups [Recovered/Resolved]

NARRATIVE: CASE EVENT DATE: 20160320
